FAERS Safety Report 22002436 (Version 2)
Quarter: 2023Q1

REPORT INFORMATION
  Report Type: Spontaneous
  Country: US (occurrence: US)
  Receive Date: 20230217
  Receipt Date: 20230220
  Transmission Date: 20230417
  Serious: No
  Sender: FDA-Public Use
  Company Number: US-BRISTOL-MYERS SQUIBB COMPANY-2023-023571

PATIENT
  Age: 48 Year
  Sex: Female

DRUGS (2)
  1. SPRYCEL [Suspect]
     Active Substance: DASATINIB
     Indication: Chronic myeloid leukaemia (in remission)
     Dosage: FREQ: DAILY
     Route: 048
     Dates: start: 202001
  2. SPRYCEL [Suspect]
     Active Substance: DASATINIB
     Dosage: FREQ: DAILY
     Route: 048
     Dates: start: 202103

REACTIONS (3)
  - Night sweats [Unknown]
  - Headache [Unknown]
  - Abdominal pain upper [Unknown]
